FAERS Safety Report 14336740 (Version 4)
Quarter: 2018Q2

REPORT INFORMATION
  Report Type: Spontaneous
  Country: US (occurrence: US)
  Receive Date: 20171229
  Receipt Date: 20180525
  Transmission Date: 20180711
  Serious: Yes (Hospitalization, Other)
  Sender: FDA-Public Use
  Company Number: US-BRISTOL-MYERS SQUIBB COMPANY-BMS-2017-115273

PATIENT
  Age: 59 Year
  Sex: Male

DRUGS (1)
  1. YERVOY [Suspect]
     Active Substance: IPILIMUMAB
     Indication: PRODUCT USED FOR UNKNOWN INDICATION
     Dosage: 945 MG, UNK
     Route: 065

REACTIONS (17)
  - Anaemia [Unknown]
  - Thrombocytopenia [Unknown]
  - Hypertension [Unknown]
  - Autoimmune dermatitis [Unknown]
  - Rash generalised [Unknown]
  - Product use issue [Unknown]
  - Diarrhoea [Unknown]
  - Weight increased [Unknown]
  - Pneumonia [Unknown]
  - Sepsis [Unknown]
  - Anaphylactic reaction [Unknown]
  - Staphylococcal infection [Unknown]
  - Systemic inflammatory response syndrome [Unknown]
  - Scrotal oedema [Unknown]
  - Hypotension [Unknown]
  - Hypocalcaemia [Unknown]
  - Malaise [Unknown]

NARRATIVE: CASE EVENT DATE: 20171127
